FAERS Safety Report 7597654-8 (Version None)
Quarter: 2011Q3

REPORT INFORMATION
  Report Type: 
  Country: None (occurrence: None)
  Receive Date: 20110708
  Receipt Date: 20110706
  Transmission Date: 20111222
  Serious: Yes (Hospitalization)
  Sender: FDA-Public Use
  Company Number: US-ROCHE-787782

PATIENT
  Age: 66 Year
  Sex: Female

DRUGS (9)
  1. DOCETAXEL [Suspect]
     Indication: BREAST CANCER
     Route: 042
     Dates: start: 20110221
  2. LAPATINIB [Suspect]
     Indication: BREAST CANCER
     Route: 048
     Dates: start: 20110221
  3. GRANULOCYTE COLONY STIMULATING FACTOR [Concomitant]
  4. CARBOPLATIN [Suspect]
     Indication: BREAST CANCER
     Dosage: FOR 6 DOSES
     Route: 042
     Dates: start: 20110221
  5. TRASTUZUMAB [Suspect]
     Indication: BREAST CANCER
     Route: 042
     Dates: start: 20110221
  6. ZOLPIDEM [Concomitant]
  7. ONDANSETRON [Concomitant]
  8. LOPERAMIDE [Concomitant]
  9. VICODIN [Concomitant]

REACTIONS (2)
  - DEHYDRATION [None]
  - DIARRHOEA [None]
